FAERS Safety Report 10200625 (Version 1)
Quarter: 2014Q2

REPORT INFORMATION
  Report Type: Spontaneous
  Country: BR (occurrence: BR)
  Receive Date: 20140528
  Receipt Date: 20140528
  Transmission Date: 20141212
  Serious: Yes (Hospitalization)
  Sender: FDA-Public Use
  Company Number: BR-AMGEN INC.-BRASP2014039548

PATIENT
  Age: 44 Year
  Sex: Female
  Weight: 76 kg

DRUGS (1)
  1. ENBREL [Suspect]
     Indication: ANKYLOSING SPONDYLITIS
     Dosage: 50 MG, ONCE WEEKLY
     Route: 065
     Dates: start: 201404, end: 201404

REACTIONS (8)
  - Feeling abnormal [Not Recovered/Not Resolved]
  - Asthenia [Unknown]
  - Chills [Unknown]
  - Renal pain [Unknown]
  - Abdominal pain [Unknown]
  - Vomiting [Unknown]
  - Pulmonary pain [Unknown]
  - Influenza [Unknown]
